FAERS Safety Report 4745350-4 (Version None)
Quarter: 2005Q3

REPORT INFORMATION
  Report Type: 
  Country: None (occurrence: None)
  Receive Date: 20050815
  Receipt Date: 20050801
  Transmission Date: 20060218
  Serious: Yes (Other)
  Sender: FDA-Public Use
  Company Number: 2005108796

PATIENT
  Age: 8 Year
  Sex: Female
  Weight: 31.7518 kg

DRUGS (1)
  1. BENYLIN DM-D (PSEUDOEPHEDRINE, DEXTROMETHORPHAN) [Suspect]
     Indication: COUGH
     Dosage: 2 TEASPOONFULS ONCE, ORAL
     Route: 048
     Dates: start: 20050731, end: 20050731

REACTIONS (5)
  - EYE SWELLING [None]
  - FACE OEDEMA [None]
  - INCORRECT ROUTE OF DRUG ADMINISTRATION [None]
  - PHARYNGEAL OEDEMA [None]
  - POOR QUALITY DRUG ADMINISTERED [None]
